FAERS Safety Report 6393185-1 (Version None)
Quarter: 2009Q4

REPORT INFORMATION
  Report Type: 
  Country: None (occurrence: None)
  Receive Date: 20091008
  Receipt Date: 20091001
  Transmission Date: 20100525
  Serious: Yes (Hospitalization)
  Sender: FDA-Public Use
  Company Number: KR-BRISTOL-MYERS SQUIBB COMPANY-14803514

PATIENT
  Age: 70 Year
  Sex: Male
  Weight: 63 kg

DRUGS (3)
  1. CISPLATIN [Suspect]
     Indication: GASTRIC CANCER
     Dosage: ON DAY1
     Route: 042
     Dates: start: 20090914
  2. AXITINIB [Suspect]
     Indication: GASTRIC CANCER
     Route: 048
     Dates: start: 20090914
  3. XELODA [Suspect]
     Indication: GASTRIC CANCER
     Dosage: DAYS 1-14, EVERY 21DAYS
     Route: 048
     Dates: start: 20090914

REACTIONS (1)
  - SINUS BRADYCARDIA [None]
